FAERS Safety Report 7979757-9 (Version None)
Quarter: 2011Q4

REPORT INFORMATION
  Report Type: 
  Country: None (occurrence: None)
  Receive Date: 20111214
  Receipt Date: 20111129
  Transmission Date: 20120403
  Serious: Yes (Hospitalization)
  Sender: FDA-Public Use
  Company Number: ES-WATSON-2011-21259

PATIENT
  Age: 79 Year
  Sex: Male

DRUGS (2)
  1. MOXIFLOXACIN [Suspect]
     Indication: URINARY TRACT INFECTION
  2. CIPROFLOXACIN HCL [Suspect]
     Indication: URINARY TRACT INFECTION
     Dosage: UNK

REACTIONS (5)
  - LIVER FUNCTION TEST ABNORMAL [None]
  - LIVER INJURY [None]
  - DECREASED APPETITE [None]
  - ASTHENIA [None]
  - JAUNDICE [None]
